FAERS Safety Report 8035102-4 (Version None)
Quarter: 2012Q1

REPORT INFORMATION
  Report Type: 
  Country: None (occurrence: None)
  Receive Date: 20120111
  Receipt Date: 20111231
  Transmission Date: 20120608
  Serious: Yes (Hospitalization, Other)
  Sender: FDA-Public Use
  Company Number: US-BIOGENIDEC-2011BI022891

PATIENT
  Age: 62 Year
  Sex: Male

DRUGS (1)
  1. TYSABRI [Suspect]
     Indication: MULTIPLE SCLEROSIS
     Route: 042
     Dates: start: 20070206, end: 20110907

REACTIONS (12)
  - DYSPHAGIA [None]
  - DIARRHOEA [None]
  - NEPHROPATHY TOXIC [None]
  - TOXICITY TO VARIOUS AGENTS [None]
  - STREPTOCOCCAL INFECTION [None]
  - PNEUMONIA ASPIRATION [None]
  - FALL [None]
  - DEEP VEIN THROMBOSIS [None]
  - DRUG INEFFECTIVE [None]
  - EMPYEMA [None]
  - VOMITING [None]
  - MULTIPLE SCLEROSIS RELAPSE [None]
